FAERS Safety Report 12858776 (Version 1)
Quarter: 2016Q4

REPORT INFORMATION
  Report Type: Spontaneous
  Country: US (occurrence: US)
  Receive Date: 20161018
  Receipt Date: 20161018
  Transmission Date: 20170207
  Serious: No
  Sender: FDA-Public Use
  Company Number: US-NOVOPROD-510250

PATIENT
  Age: 68 Year
  Sex: Female
  Weight: 113.83 kg

DRUGS (2)
  1. TRESIBA FLEXTOUCH U200 [Suspect]
     Active Substance: INSULIN DEGLUDEC
     Dosage: UNK
     Route: 058
     Dates: start: 20160804, end: 20160901
  2. TRESIBA FLEXTOUCH U200 [Suspect]
     Active Substance: INSULIN DEGLUDEC
     Indication: TYPE 2 DIABETES MELLITUS
     Dosage: UNK
     Route: 058
     Dates: start: 20160804, end: 20160901

REACTIONS (12)
  - Tremor [Recovered/Resolved]
  - Asthenia [Recovered/Resolved]
  - Muscle spasms [Recovered/Resolved]
  - Diarrhoea [Recovered/Resolved]
  - Nausea [Recovered/Resolved]
  - Halo vision [Recovered/Resolved]
  - Condition aggravated [Recovered/Resolved]
  - Dizziness [Recovered/Resolved]
  - Nocturia [Recovered/Resolved]
  - Insomnia [Recovered/Resolved]
  - Weight decreased [Recovered/Resolved]
  - Blood glucose decreased [Recovered/Resolved]

NARRATIVE: CASE EVENT DATE: 2016
